FAERS Safety Report 5391521-6 (Version None)
Quarter: 2007Q3

REPORT INFORMATION
  Report Type: 
  Country: None (occurrence: None)
  Receive Date: 20070719
  Receipt Date: 20070710
  Transmission Date: 20080115
  Serious: Yes (Other)
  Sender: FDA-Public Use
  Company Number: US-PFIZER INC-2007056705

PATIENT
  Sex: Female
  Weight: 65.909 kg

DRUGS (11)
  1. BEXTRA [Suspect]
     Indication: SYSTEMIC LUPUS ERYTHEMATOSUS
     Dosage: TEXT:TAKES 10MG OR 20MG
  2. BEXTRA [Suspect]
     Indication: ARTHRITIS
  3. ANALGESICS [Suspect]
     Dates: start: 20070701, end: 20070701
  4. ACCUPRIL [Concomitant]
  5. SPIRONOLACTONE [Concomitant]
  6. NORTRIPTYLINE HCL [Concomitant]
  7. DICYCLOMINE [Concomitant]
  8. TRIAMTERENE AND HYDROCHLOROTHIAZIDE [Concomitant]
  9. MONTELUKAST SODIUM [Concomitant]
  10. FORADIL [Concomitant]
  11. OMEGA 3 [Concomitant]

REACTIONS (2)
  - BLOOD PRESSURE INCREASED [None]
  - PANIC ATTACK [None]
